FAERS Safety Report 8070245-0 (Version None)
Quarter: 2012Q1

REPORT INFORMATION
  Report Type: 
  Country: None (occurrence: None)
  Receive Date: 20120125
  Receipt Date: 20120117
  Transmission Date: 20120608
  Serious: No
  Sender: FDA-Public Use
  Company Number: US-PFIZER INC-2012012331

PATIENT
  Sex: Female
  Weight: 80 kg

DRUGS (5)
  1. CYTOMEL [Suspect]
     Indication: HYPOTHYROIDISM
     Dosage: 25 UG, 1X/DAY
     Route: 048
  2. CYTOMEL [Suspect]
     Dosage: 2.5 UG, 2X/DAY
     Dates: start: 20110101
  3. SYNTHROID [Suspect]
     Dosage: UNK
     Route: 048
  4. CYTOMEL [Suspect]
     Dosage: 10 UG, 3X/DAY
  5. CYTOMEL [Suspect]
     Dosage: 10 UG, 2X/DAY

REACTIONS (3)
  - DYSPEPSIA [None]
  - DECREASED APPETITE [None]
  - ERUCTATION [None]
